FAERS Safety Report 5012154-7 (Version None)
Quarter: 2006Q2

REPORT INFORMATION
  Report Type: 
  Country: None (occurrence: None)
  Receive Date: 20060524
  Receipt Date: 20060517
  Transmission Date: 20061013
  Serious: Yes (Hospitalization, Other)
  Sender: FDA-Public Use
  Company Number: 2006065411

PATIENT
  Age: 61 Year
  Sex: Male
  Weight: 103.8737 kg

DRUGS (5)
  1. LIPITOR [Suspect]
     Indication: BLOOD CHOLESTEROL INCREASED
     Dosage: 20 MG (20 MG, 1 IN 1 D), ORAL
     Route: 048
     Dates: start: 19970101
  2. LYRICA [Suspect]
     Indication: NEUROPATHY PERIPHERAL
     Dosage: 75 MG (75 MG, 1 IN 1 D)
     Dates: start: 20060101
  3. DRUG, UNSPECIFIED (DRUG, UNSPECIFIED) [Suspect]
     Indication: ILL-DEFINED DISORDER
  4. CENTRUM (MINERALS NOS, VITAMINS NOS) [Concomitant]
  5. ASPIRIN [Concomitant]

REACTIONS (9)
  - CARDIAC PACEMAKER REPLACEMENT [None]
  - CARDIAC STRESS TEST ABNORMAL [None]
  - CONDUCTION DISORDER [None]
  - DEVICE FAILURE [None]
  - LOSS OF CONSCIOUSNESS [None]
  - MALAISE [None]
  - NEUROPATHY PERIPHERAL [None]
  - SLEEP APNOEA SYNDROME [None]
  - SPEECH DISORDER [None]
